FAERS Safety Report 4470787-0 (Version None)
Quarter: 2004Q4

REPORT INFORMATION
  Report Type: 
  Country: None (occurrence: None)
  Receive Date: 20041007
  Receipt Date: 20041007
  Transmission Date: 20050328
  Serious: Yes (Other)
  Sender: FDA-Public Use
  Company Number: None

PATIENT
  Age: 20 Year
  Sex: Female
  Weight: 50.8029 kg

DRUGS (2)
  1. REMERON [Suspect]
     Indication: DEPRESSION
     Dosage: ORAL
     Route: 048
  2. ZOLOFT [Suspect]
     Indication: DEPRESSION
     Dosage: ORAL
     Route: 048

REACTIONS (6)
  - CONDITION AGGRAVATED [None]
  - DEPRESSION [None]
  - EMOTIONAL DISORDER [None]
  - FEELING ABNORMAL [None]
  - SUICIDAL IDEATION [None]
  - THINKING ABNORMAL [None]
